FAERS Safety Report 4656765-7 (Version None)
Quarter: 2005Q2

REPORT INFORMATION
  Report Type: 
  Country: None (occurrence: None)
  Receive Date: 20050506
  Receipt Date: 20050429
  Transmission Date: 20051028
  Serious: Yes (Life-Threatening, Hospitalization)
  Sender: FDA-Public Use
  Company Number: 2005-04-2141

PATIENT
  Age: 43 Year
  Sex: Male
  Weight: 80 kg

DRUGS (3)
  1. VIRAFERONPEG [Suspect]
     Indication: HEPATITIS C
     Dosage: SEE IMAGE
     Route: 058
     Dates: start: 20021017, end: 20031001
  2. VIRAFERONPEG [Suspect]
     Indication: HEPATITIS C
     Dosage: SEE IMAGE
     Route: 058
     Dates: start: 20031001, end: 20041008
  3. REBETOL [Suspect]
     Indication: HEPATITIS C
     Dosage: 200 ORAL
     Route: 048
     Dates: start: 20021201, end: 20031001

REACTIONS (4)
  - BLOOD PRESSURE INCREASED [None]
  - CEREBROVASCULAR ACCIDENT [None]
  - SUBDURAL HAEMATOMA [None]
  - THROMBOCYTOPENIA [None]
